FAERS Safety Report 7828656-1 (Version None)
Quarter: 2011Q4

REPORT INFORMATION
  Report Type: 
  Country: None (occurrence: None)
  Receive Date: 20111020
  Receipt Date: 20111012
  Transmission Date: 20120403
  Serious: Yes (Hospitalization)
  Sender: FDA-Public Use
  Company Number: FR-JNJFOC-20111005255

PATIENT
  Age: 75 Year
  Sex: Male

DRUGS (13)
  1. SOTALOL HCL [Concomitant]
     Route: 065
  2. REPAGLINIDE [Concomitant]
     Route: 065
  3. MINISINTROM [Concomitant]
     Route: 065
  4. ROCEPHIN [Suspect]
     Indication: PYREXIA
     Route: 065
     Dates: start: 20110516, end: 20110517
  5. RULID [Suspect]
     Indication: PNEUMONIA
     Route: 048
     Dates: start: 20110517, end: 20110520
  6. ALLOPURINOL [Suspect]
     Route: 065
     Dates: end: 20110501
  7. ALLOPURINOL [Suspect]
     Indication: PRODUCT USED FOR UNKNOWN INDICATION
     Route: 065
     Dates: start: 20110501
  8. PROPYLTHIOURACIL [Suspect]
     Indication: PRODUCT USED FOR UNKNOWN INDICATION
     Route: 048
     Dates: end: 20110523
  9. LEVOFLOXACIN [Suspect]
     Indication: PYREXIA
     Route: 065
     Dates: start: 20110516, end: 20110517
  10. POTASSIUM CHLORIDE [Concomitant]
     Route: 065
  11. FENOFIBRATE [Concomitant]
     Route: 065
  12. AUGMENTIN '125' [Suspect]
     Indication: PNEUMONIA
     Route: 065
     Dates: start: 20110517, end: 20110520
  13. BUMETANIDE [Concomitant]
     Route: 065

REACTIONS (4)
  - TOXIC SKIN ERUPTION [None]
  - CYTOLYTIC HEPATITIS [None]
  - DRUG RASH WITH EOSINOPHILIA AND SYSTEMIC SYMPTOMS [None]
  - EOSINOPHILIA [None]
